FAERS Safety Report 4881234-9 (Version None)
Quarter: 2006Q1

REPORT INFORMATION
  Report Type: 
  Country: None (occurrence: None)
  Receive Date: 20060116
  Receipt Date: 20060103
  Transmission Date: 20060701
  Serious: Yes (Death)
  Sender: FDA-Public Use
  Company Number: CZ-JNJFOC-20051205001

PATIENT
  Sex: Female

DRUGS (6)
  1. DOXIL [Suspect]
     Route: 042
  2. DOXIL [Suspect]
     Indication: MULTIPLE MYELOMA
     Route: 042
  3. VELCADE [Suspect]
     Indication: MULTIPLE MYELOMA
     Route: 042
  4. THALIDOMIDE [Suspect]
     Indication: MULTIPLE MYELOMA
  5. DEXAMETHASONE TAB [Suspect]
     Indication: MULTIPLE MYELOMA
  6. VINCRISTINE [Suspect]
     Indication: MULTIPLE MYELOMA

REACTIONS (3)
  - ARRHYTHMIA [None]
  - MULTIPLE MYELOMA [None]
  - NEUROPATHY [None]
